FAERS Safety Report 15929628 (Version 1)
Quarter: 2019Q1

REPORT INFORMATION
  Report Type: Spontaneous
  Country: FR (occurrence: FR)
  Receive Date: 20190206
  Receipt Date: 20190206
  Transmission Date: 20190417
  Serious: Yes (Life-Threatening)
  Sender: FDA-Public Use
  Company Number: PHHY2019FR027319

PATIENT
  Age: 95 Year
  Sex: Female
  Weight: 55 kg

DRUGS (15)
  1. FUROSEMIDE. [Suspect]
     Active Substance: FUROSEMIDE
     Indication: HYPERTENSION
     Dosage: UNK
     Route: 065
  2. DIFFU K [Suspect]
     Active Substance: POTASSIUM CHLORIDE
     Indication: HYPOKALAEMIA
     Dosage: 4 ?G/L, QD
     Route: 048
     Dates: end: 20190108
  3. FUMAFER [Suspect]
     Active Substance: FERROUS FUMARATE
     Indication: ANAEMIA
     Dosage: 3 ?G/L, QD
     Route: 048
     Dates: end: 20190108
  4. BINOCRIT [Suspect]
     Active Substance: ERYTHROPOIETIN
     Indication: ANAEMIA
     Dosage: 1 ?G/L, QW
     Route: 048
     Dates: start: 201803, end: 20190108
  5. NICARDIPINE [Suspect]
     Active Substance: NICARDIPINE
     Indication: HYPERTENSION
     Dosage: 1 ?G/L, QD
     Route: 048
     Dates: end: 20190108
  6. VELCADE [Suspect]
     Active Substance: BORTEZOMIB
     Indication: PLASMA CELL MYELOMA
     Dosage: 1.52 MG, QD
     Route: 042
     Dates: start: 20181228, end: 20190108
  7. RAMIPRIL. [Suspect]
     Active Substance: RAMIPRIL
     Indication: HYPERTENSION
     Dosage: 1.25 MG, QD
     Route: 048
     Dates: end: 20190108
  8. DEXAMETHASONE. [Suspect]
     Active Substance: DEXAMETHASONE
     Indication: PLASMA CELL MYELOMA
     Dosage: 20 MG, QW
     Route: 042
     Dates: start: 201809, end: 20190108
  9. MOVICOL [Suspect]
     Active Substance: POLYETHYLENE GLYCOL 3350\POTASSIUM CHLORIDE\SODIUM BICARBONATE\SODIUM CHLORIDE
     Indication: CONSTIPATION
     Dosage: 2 ?G/L, QD
     Route: 048
     Dates: end: 20190108
  10. REVLIMID [Suspect]
     Active Substance: LENALIDOMIDE
     Indication: PLASMA CELL MYELOMA
     Dosage: UNK
     Route: 048
  11. KARDEGIC [Suspect]
     Active Substance: ASPIRIN DL-LYSINE
     Indication: PROPHYLAXIS
     Dosage: 75 MG, QD
     Route: 048
     Dates: end: 20190108
  12. PARACETAMOL [Suspect]
     Active Substance: ACETAMINOPHEN
     Indication: HYPERTENSION
     Dosage: UNK
     Route: 048
  13. ACIDE FOLIQUE [Suspect]
     Active Substance: FOLIC ACID
     Indication: ANAEMIA
     Dosage: 2 ?G/L, QW, 1CP LE MARDI ET LE JEUDI
     Route: 048
     Dates: end: 20190108
  14. BACTRIM [Suspect]
     Active Substance: SULFAMETHOXAZOLE\TRIMETHOPRIM
     Indication: ANTIBIOTIC THERAPY
     Dosage: 3 ?G/L, QW, 1CP LE LUNDI, MERCREDI, VENDREDI
     Route: 048
     Dates: start: 20181228, end: 20190108
  15. ZELITREX [Suspect]
     Active Substance: VALACYCLOVIR HYDROCHLORIDE
     Indication: PROPHYLAXIS
     Dosage: 2 ?G/L, QD
     Route: 048
     Dates: start: 20181228, end: 20190108

REACTIONS (9)
  - Hyperkalaemia [Recovered/Resolved]
  - Dehydration [Recovered/Resolved]
  - Acute kidney injury [Recovered/Resolved]
  - Diarrhoea [Recovered/Resolved]
  - Metabolic acidosis [Recovering/Resolving]
  - Metabolic encephalopathy [Recovered/Resolved]
  - Decreased appetite [Recovered/Resolved]
  - Circulatory collapse [Recovered/Resolved]
  - Vomiting [Recovered/Resolved]

NARRATIVE: CASE EVENT DATE: 20190106
